FAERS Safety Report 24360793 (Version 1)
Quarter: 2024Q3

REPORT INFORMATION
  Report Type: Report from Study
  Country: US (occurrence: US)
  Receive Date: 20240925
  Receipt Date: 20240925
  Transmission Date: 20241017
  Serious: Yes (Other)
  Sender: ABBVIE
  Company Number: US-ABBVIE-5811821

PATIENT
  Age: 48 Year
  Sex: Female
  Weight: 107 kg

DRUGS (10)
  1. RINVOQ [Suspect]
     Active Substance: UPADACITINIB
     Indication: Colitis ulcerative
     Dosage: STRENGTH: 30 MG?EXTENDED RELEASE
     Route: 048
     Dates: start: 20230418
  2. ENTYVIO [Concomitant]
     Active Substance: VEDOLIZUMAB
     Indication: Product used for unknown indication
     Dosage: STRENGTH: 300MG
     Dates: end: 20240426
  3. LEXAPRO [Concomitant]
     Active Substance: ESCITALOPRAM OXALATE
     Indication: Product used for unknown indication
     Dosage: STRENGTH: 20 MG
     Route: 048
  4. HYDROGEN PEROXIDE [Concomitant]
     Active Substance: HYDROGEN PEROXIDE
     Indication: Product used for unknown indication
  5. NEOSPORIN [Concomitant]
     Active Substance: BACITRACIN ZINC\NEOMYCIN SULFATE\POLYMYXIN B SULFATE
     Indication: Product used for unknown indication
  6. BACTROBAN [Concomitant]
     Active Substance: MUPIROCIN CALCIUM
     Indication: Product used for unknown indication
     Dosage: TIME INTERVAL: 0.33333333 DAYS: 2% FOR 7 DAYS
     Route: 061
     Dates: start: 20240513
  7. BENTYL [Concomitant]
     Active Substance: DICYCLOMINE HYDROCHLORIDE
     Indication: Product used for unknown indication
     Dosage: STRENGTH: 20 MILLIGRAM
     Route: 048
     Dates: end: 20240426
  8. LIDEX [Concomitant]
     Active Substance: FLUOCINONIDE
     Indication: Product used for unknown indication
     Dosage: 0.05% EXTERNAL SOLUTION
     Dates: end: 20240426
  9. NASONEX [Concomitant]
     Active Substance: MOMETASONE FUROATE
     Indication: Product used for unknown indication
     Dosage: 50 MCG/ACTUATION
     Dates: end: 20240426
  10. MIRALAX [Concomitant]
     Active Substance: POLYETHYLENE GLYCOL 3350
     Indication: Product used for unknown indication
     Dosage: 17 GRAM/DOSE
     Dates: end: 20240426

REACTIONS (9)
  - Skin laceration [Recovered/Resolved]
  - Fatigue [Recovered/Resolved]
  - Fall [Unknown]
  - Impaired healing [Recovered/Resolved]
  - Headache [Recovered/Resolved]
  - Nausea [Recovered/Resolved]
  - Stress [Recovered/Resolved]
  - Skin abrasion [Recovered/Resolved]
  - Accident [Unknown]

NARRATIVE: CASE EVENT DATE: 20240101
